FAERS Safety Report 15308368 (Version 2)
Quarter: 2019Q1

REPORT INFORMATION
  Report Type: Spontaneous
  Country: US (occurrence: US)
  Receive Date: 20180822
  Receipt Date: 20190227
  Transmission Date: 20190417
  Serious: Yes (Other)
  Sender: FDA-Public Use
  Company Number: US-NOVOPROD-616536

PATIENT
  Age: 72 Year
  Sex: Male
  Weight: 95.24 kg

DRUGS (16)
  1. ALBUTEROL                          /00139501/ [Concomitant]
     Active Substance: ALBUTEROL
     Indication: PRODUCT USED FOR UNKNOWN INDICATION
     Dosage: 2.50 MG
     Route: 055
  2. ATORVASTATIN [Concomitant]
     Active Substance: ATORVASTATIN
     Indication: PRODUCT USED FOR UNKNOWN INDICATION
     Dosage: 80 MG, QD
     Route: 048
  3. HYDROCHLOROTHIAZIDE. [Concomitant]
     Active Substance: HYDROCHLOROTHIAZIDE
     Indication: PRODUCT USED FOR UNKNOWN INDICATION
     Dosage: 25 MG, QD
     Route: 048
  4. LEVOTHYROXINE. [Concomitant]
     Active Substance: LEVOTHYROXINE
     Indication: PRODUCT USED FOR UNKNOWN INDICATION
     Dosage: 137 ?G, QD
     Route: 048
  5. PYRIDOXINE [Concomitant]
     Active Substance: PYRIDOXINE
     Indication: PRODUCT USED FOR UNKNOWN INDICATION
     Dosage: 100 MG, QD
     Route: 048
  6. ASPIRIN                            /00002701/ [Concomitant]
     Active Substance: ASPIRIN
     Indication: PRODUCT USED FOR UNKNOWN INDICATION
     Dosage: 81 MG, QD
     Route: 048
  7. BUDESONIDE. [Concomitant]
     Active Substance: BUDESONIDE
     Indication: PRODUCT USED FOR UNKNOWN INDICATION
     Dosage: 0.50 MG, BID
     Route: 055
  8. LOSARTAN. [Concomitant]
     Active Substance: LOSARTAN
     Indication: PRODUCT USED FOR UNKNOWN INDICATION
     Dosage: 100 MG, QD
     Route: 048
  9. MULTIVIT                           /07504101/ [Concomitant]
     Active Substance: VITAMINS
     Indication: PRODUCT USED FOR UNKNOWN INDICATION
     Dosage: UNK ONCE A DAY
     Route: 048
  10. AMITRIPTYLINE [Concomitant]
     Active Substance: AMITRIPTYLINE
     Indication: PRODUCT USED FOR UNKNOWN INDICATION
     Dosage: 25 MG, QD AT NIGHT
     Route: 048
  11. ARFORMOTEROL [Concomitant]
     Active Substance: ARFORMOTEROL
     Indication: PRODUCT USED FOR UNKNOWN INDICATION
     Dosage: 15 MCG BID
     Route: 055
  12. METOPROLOL TARTRATE. [Concomitant]
     Active Substance: METOPROLOL TARTRATE
     Indication: PRODUCT USED FOR UNKNOWN INDICATION
     Dosage: 50 MG, TID
     Route: 048
  13. NOVOLOG [Suspect]
     Active Substance: INSULIN ASPART
     Indication: TYPE 2 DIABETES MELLITUS
     Dosage: 220 IU, QD
     Route: 058
     Dates: start: 2006
  14. PLAVIX [Concomitant]
     Active Substance: CLOPIDOGREL BISULFATE
     Indication: PRODUCT USED FOR UNKNOWN INDICATION
     Dosage: 75 MG, QD
     Route: 048
  15. CYANOCOBALAMIN. [Concomitant]
     Active Substance: CYANOCOBALAMIN
     Indication: PRODUCT USED FOR UNKNOWN INDICATION
     Dosage: 1000 MCG QD
     Route: 048
  16. ALBUTEROL HFA [Concomitant]
     Active Substance: ALBUTEROL SULFATE
     Indication: WHEEZING
     Dosage: 2 PUFFS EVERY 4 HOURS PRN
     Route: 055

REACTIONS (21)
  - Cataract operation [Unknown]
  - Arthralgia [Unknown]
  - Vocal cord polypectomy [Unknown]
  - Tremor [Unknown]
  - Hypoglycaemia [Unknown]
  - Hypoaesthesia [Unknown]
  - Diabetic neuropathy [Not Recovered/Not Resolved]
  - Carpal tunnel decompression [Unknown]
  - Carpal tunnel decompression [Unknown]
  - Muscle spasms [Unknown]
  - Blood glucose increased [Unknown]
  - Coronary arterial stent insertion [Unknown]
  - Chest pain [Unknown]
  - Peripheral artery occlusion [Unknown]
  - Lung neoplasm malignant [Recovered/Resolved]
  - Neuropathic arthropathy [Not Recovered/Not Resolved]
  - Cholecystectomy [Unknown]
  - Tendon sheath incision [Unknown]
  - Adrenal mass [Not Recovered/Not Resolved]
  - Palpitations [Unknown]
  - Paraesthesia [Unknown]

NARRATIVE: CASE EVENT DATE: 2012
